FAERS Safety Report 5577565-X (Version None)
Quarter: 2007Q4

REPORT INFORMATION
  Report Type: 
  Country: None (occurrence: None)
  Receive Date: 20071130
  Receipt Date: 20070924
  Transmission Date: 20080405
  Serious: No
  Sender: FDA-Public Use
  Company Number: US200709005727

PATIENT
  Age: 53 Year
  Sex: Female
  Weight: 120.2 kg

DRUGS (4)
  1. BYETTA [Suspect]
     Indication: TYPE 2 DIABETES MELLITUS
     Dosage: 5 UG, 2/D, SUBCUTANEOUS
     Route: 058
     Dates: start: 20070701
  2. METFORMIN HCL [Concomitant]
  3. LEVEMIR (INSULIN DETEMIR) [Concomitant]
  4. NOVOLOG [Concomitant]

REACTIONS (7)
  - ABDOMINAL DISTENSION [None]
  - ABDOMINAL MASS [None]
  - DIARRHOEA [None]
  - DISCOMFORT [None]
  - DYSPNOEA [None]
  - INJECTION SITE BRUISING [None]
  - WEIGHT DECREASED [None]
